FAERS Safety Report 19236170 (Version 1)
Quarter: 2021Q2

REPORT INFORMATION
  Report Type: Report from Study
  Country: US (occurrence: US)
  Receive Date: 20210510
  Receipt Date: 20210510
  Transmission Date: 20210717
  Serious: Yes (Hospitalization, Other)
  Sender: FDA-Public Use
  Company Number: US-AUROBINDO-AUR-APL-2021-018986

PATIENT
  Age: 69 Year
  Sex: Female
  Weight: 69.4 kg

DRUGS (3)
  1. BELINOSTAT IND [Suspect]
     Active Substance: BELINOSTAT
     Indication: HAEMATOLOGICAL MALIGNANCY
     Dosage: 1297.5 MILLIGRAM
     Route: 042
     Dates: start: 20210322, end: 20210416
  2. BELINOSTAT IND [Suspect]
     Active Substance: BELINOSTAT
     Indication: NEOPLASM
  3. ATAZANAVIR. [Suspect]
     Active Substance: ATAZANAVIR
     Indication: HAEMATOLOGICAL MALIGNANCY
     Dosage: 200 MILLIGRAM
     Route: 048
     Dates: start: 20210405, end: 20210416

REACTIONS (1)
  - Transient ischaemic attack [Recovered/Resolved]

NARRATIVE: CASE EVENT DATE: 20210424
